FAERS Safety Report 8881238 (Version 1)
Quarter: 2012Q4

REPORT INFORMATION
  Report Type: 
  Country: AT (occurrence: AT)
  Receive Date: 20121031
  Receipt Date: 20121031
  Transmission Date: 20130627
  Serious: Yes (Hospitalization)
  Sender: FDA-Public Use
  Company Number: AT-B.I. PHARMACEUTICALS,INC./RIDGEFIELD-2012-AP-00906AP

PATIENT
  Age: 65 Year
  Sex: Male

DRUGS (5)
  1. PRADAXA [Suspect]
     Indication: KNEE OPERATION
     Route: 048
     Dates: start: 20121011, end: 20121018
  2. PANTOLOC [Concomitant]
  3. INEGY [Concomitant]
  4. GICHTEX [Concomitant]
  5. AMBROBENE [Concomitant]

REACTIONS (1)
  - Thrombosis [Not Recovered/Not Resolved]
